FAERS Safety Report 9941002 (Version 1)
Quarter: 2014Q1

REPORT INFORMATION
  Report Type: Spontaneous
  Country: FR (occurrence: FR)
  Receive Date: 20140303
  Receipt Date: 20140303
  Transmission Date: 20141002
  Serious: Yes (Other)
  Sender: FDA-Public Use
  Company Number: FR-PFIZER INC-2014054907

PATIENT
  Age: 44 Year
  Sex: Female

DRUGS (4)
  1. TRINORDIOL [Suspect]
     Indication: CONTRACEPTION
     Dosage: 1 DF, 1X/DAY FOR 21 DAYS
     Route: 048
     Dates: start: 1995, end: 2005
  2. LEELOO [Suspect]
     Indication: CONTRACEPTION
     Dosage: 0,1 MG/0,02 MG, 1 DF, 1X/DAY FOR 21 DAYS
     Route: 048
     Dates: start: 2005, end: 2012
  3. CERAZETTE [Suspect]
     Indication: CONTRACEPTION
     Dosage: 1 DF, 1X/DAY FOR 28 DAYS
     Route: 048
     Dates: start: 2012, end: 2013
  4. DEPAKINE CHRONO [Suspect]
     Dosage: 500 MG, 2X/DAY
     Route: 048
     Dates: start: 1980

REACTIONS (1)
  - Nodular regenerative hyperplasia [Not Recovered/Not Resolved]
